FAERS Safety Report 25679559 (Version 2)
Quarter: 2025Q3

REPORT INFORMATION
  Report Type: Spontaneous
  Country: US (occurrence: US)
  Receive Date: 20250814
  Receipt Date: 20250825
  Transmission Date: 20251021
  Serious: No
  Sender: KARYOPHARM THERAPEUTICS
  Company Number: US-KARYOPHARM-2025KPT100616

PATIENT

DRUGS (8)
  1. SELINEXOR [Suspect]
     Active Substance: SELINEXOR
     Indication: Plasma cell myeloma
     Route: 048
  2. SELINEXOR [Suspect]
     Active Substance: SELINEXOR
     Route: 048
  3. DULOXETINE [Concomitant]
     Active Substance: DULOXETINE
  4. METHADONE [Concomitant]
     Active Substance: METHADONE HYDROCHLORIDE
  5. OLANZAPINE [Concomitant]
     Active Substance: OLANZAPINE
  6. OMEPRAZOLE [Concomitant]
     Active Substance: OMEPRAZOLE
  7. TRAZODONE [Concomitant]
     Active Substance: TRAZODONE HYDROCHLORIDE
  8. VALGANCICLOVIR [Concomitant]
     Active Substance: VALGANCICLOVIR

REACTIONS (1)
  - Diarrhoea [Not Recovered/Not Resolved]
